FAERS Safety Report 10163345 (Version 1)
Quarter: 2014Q2

REPORT INFORMATION
  Report Type: Spontaneous
  Country: US (occurrence: US)
  Receive Date: 20140509
  Receipt Date: 20140509
  Transmission Date: 20141212
  Serious: Yes (Other)
  Sender: FDA-Public Use
  Company Number: PHEH2014US009077

PATIENT
  Sex: Male

DRUGS (3)
  1. EXELON PATCH [Suspect]
     Dosage: 4.6 MG, QD
     Route: 062
     Dates: start: 201312
  2. NAMENDA [Concomitant]
     Dosage: UNK
  3. ARICEPT [Concomitant]
     Dosage: UNK

REACTIONS (7)
  - Brain injury [Unknown]
  - Cerebrovascular accident [Unknown]
  - Cardiac disorder [Unknown]
  - Angiopathy [Unknown]
  - Fear [Unknown]
  - Drug administration error [Unknown]
  - Incorrect drug administration duration [Unknown]
